FAERS Safety Report 19714319 (Version 1)
Quarter: 2021Q3

REPORT INFORMATION
  Report Type: Spontaneous
  Country: US (occurrence: US)
  Receive Date: 20210817
  Receipt Date: 20210817
  Transmission Date: 20211014
  Serious: No
  Sender: FDA-Public Use
  Company Number: None

PATIENT
  Sex: Male
  Weight: 84.6 kg

DRUGS (1)
  1. RISPERIDONE 1MG/ML [Suspect]
     Active Substance: RISPERIDONE
     Indication: INITIAL INSOMNIA
     Route: 048
     Dates: start: 20210622

REACTIONS (2)
  - Product substitution issue [None]
  - Drug ineffective [None]
